FAERS Safety Report 8122611-2 (Version None)
Quarter: 2012Q1

REPORT INFORMATION
  Report Type: 
  Country: None (occurrence: None)
  Receive Date: 20120206
  Receipt Date: 20120120
  Transmission Date: 20120608
  Serious: Yes (Hospitalization)
  Sender: FDA-Public Use
  Company Number: CIO12001671

PATIENT
  Age: 46 Year
  Sex: Male

DRUGS (1)
  1. ACETAMINOPHEN [Suspect]
     Dosage: ORAL
     Route: 048

REACTIONS (4)
  - ANALGESIC DRUG LEVEL INCREASED [None]
  - SUICIDE ATTEMPT [None]
  - OVERDOSE [None]
  - THERMAL BURN [None]
